FAERS Safety Report 6493858-6 (Version None)
Quarter: 2009Q4

REPORT INFORMATION
  Report Type: 
  Country: None (occurrence: None)
  Receive Date: 20091214
  Receipt Date: 20081112
  Transmission Date: 20100525
  Serious: No
  Sender: FDA-Public Use
  Company Number: US-BRISTOL-MYERS SQUIBB COMPANY-14403976

PATIENT
  Age: 45 Year
  Sex: Male

DRUGS (2)
  1. ABILIFY [Suspect]
     Dosage: TAPERED OFF + RESTARTED. 1 DF=1MG FOR 2WEEKS; 2MG FOR 2WEEKS THEN 2.5MG
     Dates: start: 20080101
  2. CYMBALTA [Suspect]

REACTIONS (1)
  - DYSKINESIA [None]
